FAERS Safety Report 16370419 (Version 1)
Quarter: 2019Q2

REPORT INFORMATION
  Report Type: Spontaneous
  Country: ES (occurrence: ES)
  Receive Date: 20190530
  Receipt Date: 20190530
  Transmission Date: 20190711
  Serious: Yes (Life-Threatening, Hospitalization)
  Sender: FDA-Public Use
  Company Number: ES-ACCORD-130043

PATIENT
  Age: 73 Year
  Sex: Male

DRUGS (8)
  1. ETOPOSIDE. [Interacting]
     Active Substance: ETOPOSIDE
     Indication: HODGKIN^S DISEASE
     Route: 048
     Dates: start: 20181001, end: 20190225
  2. CYCLOPHOSPHAMIDE/CYCLOPHOSPHAMIDE MONOHYDRATE [Interacting]
     Active Substance: CYCLOPHOSPHAMIDE
     Indication: HODGKIN^S DISEASE
     Route: 042
     Dates: start: 20180917, end: 20190207
  3. VINBLASTINE [Interacting]
     Active Substance: VINBLASTINE
     Indication: HODGKIN^S DISEASE
     Route: 042
     Dates: start: 20180917, end: 20190207
  4. METHOTREXATE. [Suspect]
     Active Substance: METHOTREXATE
     Indication: HODGKIN^S DISEASE
     Route: 042
     Dates: start: 20181001, end: 20190221
  5. BLEOMYCIN [Interacting]
     Active Substance: BLEOMYCIN SULFATE
     Indication: HODGKIN^S DISEASE
     Route: 042
     Dates: start: 20181001, end: 20190221
  6. PROCARBAZINE/PROCARBAZINE HYDROCHLORIDE [Interacting]
     Active Substance: PROCARBAZINE HYDROCHLORIDE
     Indication: HODGKIN^S DISEASE
     Route: 048
     Dates: start: 20180917, end: 20190211
  7. GRANULOCYTE COLONY STIMULATING [Concomitant]
     Active Substance: GRANULOCYTE COLONY-STIMULATING FACTOR NOS
     Indication: PROPHYLAXIS
     Route: 058
     Dates: start: 20181018, end: 20190204
  8. PREDNISONE. [Interacting]
     Active Substance: PREDNISONE
     Indication: HODGKIN^S DISEASE
     Route: 048
     Dates: start: 20180917, end: 20190211

REACTIONS (4)
  - Agranulocytosis [Recovered/Resolved]
  - Pneumocystis jirovecii pneumonia [Not Recovered/Not Resolved]
  - Drug interaction [Unknown]
  - Off label use [Unknown]

NARRATIVE: CASE EVENT DATE: 20190304
